FAERS Safety Report 8274272-X (Version None)
Quarter: 2012Q2

REPORT INFORMATION
  Report Type: 
  Country: None (occurrence: None)
  Receive Date: 20120411
  Receipt Date: 20120411
  Transmission Date: 20120825
  Serious: Yes (Life-Threatening, Other)
  Sender: FDA-Public Use
  Company Number: None

PATIENT
  Age: 35 Year
  Sex: Female
  Weight: 79.378 kg

DRUGS (1)
  1. SUPRAX [Suspect]
     Indication: PHARYNGITIS STREPTOCOCCAL
     Dosage: 400.0 MG
     Route: 048
     Dates: start: 20120319, end: 20120329

REACTIONS (2)
  - DEHYDRATION [None]
  - CLOSTRIDIUM DIFFICILE COLITIS [None]
